FAERS Safety Report 19327495 (Version 1)
Quarter: 2021Q2

REPORT INFORMATION
  Report Type: Spontaneous
  Country: US (occurrence: US)
  Receive Date: 20210528
  Receipt Date: 20210528
  Transmission Date: 20210717
  Serious: Yes (Death, Hospitalization)
  Sender: FDA-Public Use
  Company Number: US-OTSUKA-2021_018099

PATIENT
  Age: 30 Year
  Sex: Female

DRUGS (2)
  1. ABILIFY MAINTENA [Suspect]
     Active Substance: ARIPIPRAZOLE
     Dosage: 300 MG
     Route: 065
     Dates: start: 20170829
  2. ABILIFY MAINTENA [Suspect]
     Active Substance: ARIPIPRAZOLE
     Indication: PRODUCT USED FOR UNKNOWN INDICATION
     Dosage: 400 MG
     Route: 065
     Dates: start: 20171107

REACTIONS (6)
  - COVID-19 [Unknown]
  - Underdose [Unknown]
  - Mass [Unknown]
  - Diabetes mellitus [Unknown]
  - Arthropod bite [Unknown]
  - Death [Fatal]

NARRATIVE: CASE EVENT DATE: 20170829
